FAERS Safety Report 6778820-8 (Version None)
Quarter: 2010Q2

REPORT INFORMATION
  Report Type: 
  Country: None (occurrence: None)
  Receive Date: 20100618
  Receipt Date: 20100608
  Transmission Date: 20101027
  Serious: Yes (Hospitalization)
  Sender: FDA-Public Use
  Company Number: US-JNJFOC-20100603504

PATIENT
  Sex: Female
  Weight: 122.47 kg

DRUGS (9)
  1. SIMPONI [Suspect]
     Indication: RHEUMATOID ARTHRITIS
     Route: 058
  2. SIMPONI [Suspect]
     Route: 058
  3. NORVASC [Concomitant]
     Indication: HYPERTENSION
  4. SERTRALINE HCL [Concomitant]
     Indication: DEPRESSION
  5. ARAVA [Concomitant]
     Indication: RHEUMATOID ARTHRITIS
  6. CALCIUM W/VITAMIN D [Concomitant]
  7. VITAMIN TAB [Concomitant]
  8. GABAPENTIN [Concomitant]
     Indication: SCOLIOSIS
  9. DETROL LA [Concomitant]
     Indication: URINARY INCONTINENCE

REACTIONS (2)
  - INJECTION SITE HAEMATOMA [None]
  - PNEUMONIA BACTERIAL [None]
